FAERS Safety Report 15397313 (Version 9)
Quarter: 2021Q4

REPORT INFORMATION
  Report Type: Report from Study
  Country: IT (occurrence: IT)
  Receive Date: 20180918
  Receipt Date: 20211011
  Transmission Date: 20220304
  Serious: Yes (Other)
  Sender: FDA-Public Use
  Company Number: IT-ROCHE-2110841

PATIENT
  Age: 63 Year
  Sex: Female
  Weight: 62 kg

DRUGS (41)
  1. PACLITAXEL [Suspect]
     Active Substance: PACLITAXEL
     Indication: HER2 positive breast cancer
     Dosage: MOST RECENT DOSE PRIOR TO THE EVENT: 10/FEB/2017
     Route: 042
     Dates: start: 20170131
  2. PACLITAXEL [Suspect]
     Active Substance: PACLITAXEL
     Dosage: MOST RECENT DOSE OF PACLITAXEL: 28/JUN/2017
     Route: 042
     Dates: start: 20170426
  3. PACLITAXEL [Suspect]
     Active Substance: PACLITAXEL
     Dosage: MOST RECENT DOSE OF PACLITAXEL: 19/JUL/2017
     Route: 042
     Dates: start: 20170705
  4. PACLITAXEL [Suspect]
     Active Substance: PACLITAXEL
     Dosage: MOST RECENT DOSE OF PACLITAXEL: 03/APR/2017
     Route: 042
     Dates: start: 20170224
  5. CAPECITABINE [Suspect]
     Active Substance: CAPECITABINE
     Indication: Breast cancer
     Dosage: 3000 MILLIGRAM, QD(MOST RECENT DOSE ON 19/JAN/2018)
     Route: 048
     Dates: start: 20171220
  6. CAPECITABINE [Suspect]
     Active Substance: CAPECITABINE
     Indication: HER2 positive breast cancer
     Dosage: 1500 MILLIGRAM, BID,MOST RECENT DOSE ON 19/JAN/2018
     Route: 048
     Dates: start: 20171220
  7. CAPECITABINE [Suspect]
     Active Substance: CAPECITABINE
     Indication: HER2 positive breast cancer
     Dosage: MOST RECENT DOSE ON 08/JAN/2018
     Route: 048
     Dates: start: 20171220
  8. CAPECITABINE [Suspect]
     Active Substance: CAPECITABINE
     Dosage: MOST RECENT DOSE OF CAPECITABINE: 19/JAN/2018
     Route: 048
     Dates: start: 20180119
  9. EXEMESTANE [Suspect]
     Active Substance: EXEMESTANE
     Indication: HER2 positive breast cancer
     Dosage: 25 MILLIGRAM, QD DATE OF MOST RENCET DOSE:19/DEC/2017
     Route: 048
     Dates: start: 20170726
  10. VINORELBINE [Suspect]
     Active Substance: VINORELBINE TARTRATE
     Indication: Breast cancer
     Dosage: 60 MILLIGRAM/SQ. METER, Q3W (MOST RECENT DOSE WAS ON 17/AUG/2018)
     Route: 048
     Dates: start: 20180727
  11. VINORELBINE [Suspect]
     Active Substance: VINORELBINE TARTRATE
     Dosage: 80 MILLIGRAM/SQ. METER (MOST RECENT DOSE OF VINORELBINE: 06/NOV/2018)
     Route: 048
     Dates: start: 20180911
  12. TAXOL [Suspect]
     Active Substance: PACLITAXEL
     Indication: Breast cancer
     Dosage: 110 MG, QW, MOST RECENT DOSE PRIOR TO THE EVENT: 05/JUL/2017
     Route: 042
     Dates: start: 20170131
  13. TAXOL [Suspect]
     Active Substance: PACLITAXEL
     Indication: HER2 positive breast cancer
  14. AROMASIN [Suspect]
     Active Substance: EXEMESTANE
     Indication: Breast cancer
     Dosage: 25 MG, QD DATE OF MOST RENCET DOSE: 19/DEC/2017
     Route: 048
     Dates: start: 20170726
  15. AROMASIN [Suspect]
     Active Substance: EXEMESTANE
     Indication: HER2 positive breast cancer
  16. TRASTUZUMAB [Suspect]
     Active Substance: TRASTUZUMAB
     Indication: Breast cancer
     Dosage: 8 MG/KG, QW, MOST RECENT DOSE PRIOR TO THE EVENT: 24/FEB/2017
     Route: 042
     Dates: start: 20170131
  17. TRASTUZUMAB [Suspect]
     Active Substance: TRASTUZUMAB
     Indication: HER2 positive breast cancer
     Dosage: 8 MILLIGRAM/KILOGRAM, Q3W MOST RECENT DOSE PRIOR TO THE EVENT: 24/FEB/2017)
     Route: 041
     Dates: start: 20170131
  18. TRASTUZUMAB [Suspect]
     Active Substance: TRASTUZUMAB
     Dosage: MOST RECENT DOSE OF IV TRASTUZUMAB: 17/AUG/2018
     Route: 042
     Dates: start: 20180727
  19. TRASTUZUMAB [Suspect]
     Active Substance: TRASTUZUMAB
     Dosage: 6 MILLIGRAM PER KILOGRAM, Q3W
     Route: 042
     Dates: start: 20170224
  20. TYKERB [Suspect]
     Active Substance: LAPATINIB DITOSYLATE
     Indication: Breast cancer
     Dosage: 250 MG, UNK, MOST RECENT DOSE PRIOR TO THE EVENT: 30/MAR/2018
     Route: 048
     Dates: start: 20171219
  21. TYKERB [Suspect]
     Active Substance: LAPATINIB DITOSYLATE
     Indication: HER2 positive breast cancer
  22. PERTUZUMAB [Suspect]
     Active Substance: PERTUZUMAB
     Indication: Breast cancer
     Dosage: 840 MILLIGRAM, Q3W, MOST RECENT DOSE PRIOR TO THE EVENT: 24/FEB/2017
     Route: 042
     Dates: start: 20170131
  23. PERTUZUMAB [Suspect]
     Active Substance: PERTUZUMAB
     Indication: HER2 positive breast cancer
     Dosage: MOST RECENT DOSE OF IV PERTUZUMAB: 28/NOV/2017
     Route: 042
     Dates: start: 20170224
  24. LAPATINIB [Suspect]
     Active Substance: LAPATINIB
     Indication: HER2 positive breast cancer
     Dosage: 250 MILLIGRAM MOST RECENT DOSE PRIOR TO THE EVENT: 30/MAR/2018
     Route: 048
     Dates: start: 20171219
  25. LAPATINIB [Suspect]
     Active Substance: LAPATINIB
     Dosage: MOST RECENT DOSE OF LAPATINIB: 02/MAR/2018
     Route: 048
     Dates: start: 20180223
  26. LAPATINIB [Suspect]
     Active Substance: LAPATINIB
     Dosage: MOST RECENT DOSE OF LAPATINIB: /MAR/2018
     Route: 048
     Dates: start: 201803
  27. LAPATINIB [Suspect]
     Active Substance: LAPATINIB
     Dosage: MOST RECENT DOSE OF LAPATINIB: /MAR/2018
     Route: 048
     Dates: start: 20180303
  28. LAPATINIB [Suspect]
     Active Substance: LAPATINIB
     Dosage: MOST RECENT DOSE OF LAPATINIB: 22/FEB/2018
     Route: 048
     Dates: start: 20180216
  29. LAPATINIB [Suspect]
     Active Substance: LAPATINIB
     Dosage: MOST RECENT DOSE OF LAPATINIB: 20/JUL/2018
     Route: 048
     Dates: start: 20180330
  30. AMLODIPINE BESYLATE\OLMESARTAN MEDOXOMIL [Concomitant]
     Active Substance: AMLODIPINE BESYLATE\OLMESARTAN MEDOXOMIL
     Indication: Product used for unknown indication
     Dosage: UNK
     Route: 065
     Dates: start: 20171004
  31. MEDROL [Concomitant]
     Active Substance: METHYLPREDNISOLONE
     Dosage: UNK
     Dates: start: 20180725, end: 20180731
  32. MEDROL [Concomitant]
     Active Substance: METHYLPREDNISOLONE
     Dosage: UNK
     Dates: start: 20180720, end: 20180724
  33. RACECADOTRIL [Concomitant]
     Active Substance: RACECADOTRIL
     Indication: Diarrhoea
     Dosage: UNK
     Route: 065
     Dates: start: 20170531
  34. RACECADOTRIL [Concomitant]
     Active Substance: RACECADOTRIL
     Dosage: UNK
     Route: 065
     Dates: start: 20170705
  35. CHOLECALCIFEROL [Concomitant]
     Active Substance: CHOLECALCIFEROL
     Dosage: UNK
     Route: 065
     Dates: start: 20170726
  36. SERTRALINE [Concomitant]
     Active Substance: SERTRALINE HYDROCHLORIDE
     Dosage: UNK
  37. XANAX [Concomitant]
     Active Substance: ALPRAZOLAM
     Dosage: UNK
  38. BETAMETHASONE SODIUM PHOSPHATE [Concomitant]
     Active Substance: BETAMETHASONE SODIUM PHOSPHATE
     Indication: Asthenia
     Dosage: ONGOING, NOT CHECKED
     Route: 065
     Dates: start: 20180108, end: 20180330
  39. MEDROL [Concomitant]
     Active Substance: METHYLPREDNISOLONE
     Dosage: UNK
     Route: 065
     Dates: start: 20180720, end: 20180724
  40. MEDROL [Concomitant]
     Active Substance: METHYLPREDNISOLONE
     Dosage: UNK
     Route: 065
     Dates: start: 20180725, end: 20180731
  41. DENOSUMAB [Concomitant]
     Active Substance: DENOSUMAB
     Dosage: UNK
     Route: 065
     Dates: start: 20170823, end: 20180727

REACTIONS (4)
  - Hypokalaemia [Recovered/Resolved]
  - Diarrhoea [Recovered/Resolved]
  - Asthenia [Recovered/Resolved]
  - Malaise [Recovered/Resolved]

NARRATIVE: CASE EVENT DATE: 20170531
